FAERS Safety Report 23057636 (Version 1)
Quarter: 2023Q4

REPORT INFORMATION
  Report Type: Other
  Country: US (occurrence: None)
  Receive Date: 20231012
  Receipt Date: 20231012
  Transmission Date: 20240109
  Serious: Yes (Hospitalization)
  Sender: FDA-Public Use
  Company Number: US-ROCHE-3413598

PATIENT
  Age: 39 Year
  Sex: Male
  Weight: 41.1 kg

DRUGS (1)
  1. EVRYSDI [Suspect]
     Active Substance: RISDIPLAM
     Indication: Spinal muscular atrophy
     Dosage: DOSE 5 MG (6.6 ML)?STRENGTH: 0.75 MG/ML
     Route: 048

REACTIONS (3)
  - Oesophageal stenosis [Unknown]
  - Oesophageal dilatation [Unknown]
  - Dysphagia [Unknown]
